FAERS Safety Report 6430292-9 (Version None)
Quarter: 2009Q4

REPORT INFORMATION
  Report Type: 
  Country: None (occurrence: None)
  Receive Date: 20091106
  Receipt Date: 20091030
  Transmission Date: 20100525
  Serious: Yes (Other)
  Sender: FDA-Public Use
  Company Number: NO-NAPPMUNDI-GBR-2009-0005762

PATIENT
  Sex: Female
  Weight: 35.2 kg

DRUGS (12)
  1. OXYNORM [Suspect]
     Indication: DRUG USE FOR UNKNOWN INDICATION
     Route: 048
  2. TRAMADOL HCL [Suspect]
     Indication: DRUG USE FOR UNKNOWN INDICATION
     Route: 048
  3. VESICARE                           /01735901/ [Suspect]
     Indication: DRUG USE FOR UNKNOWN INDICATION
     Route: 048
  4. TRAMAGETIC [Suspect]
     Indication: DRUG USE FOR UNKNOWN INDICATION
     Route: 048
  5. EFEXOR                             /01233801/ [Suspect]
     Indication: DRUG USE FOR UNKNOWN INDICATION
     Route: 048
  6. KEPPRA [Suspect]
     Indication: DRUG USE FOR UNKNOWN INDICATION
     Route: 048
  7. STESOLID [Suspect]
     Indication: DRUG USE FOR UNKNOWN INDICATION
     Dosage: 5 MG, PRN
     Route: 054
  8. CALCIGRAN                          /00944201/ [Concomitant]
     Route: 048
  9. ALBYL-E [Concomitant]
     Dosage: 75 MCG, UNK
     Route: 048
  10. SIMVASTATIN [Concomitant]
     Dosage: UNK
     Route: 048
  11. SELEXID                            /00445302/ [Concomitant]
     Indication: URINARY TRACT INFECTION
     Dosage: 200 MG, UNK
     Route: 048
  12. IMODIUM                            /00384302/ [Concomitant]
     Route: 048

REACTIONS (1)
  - DELIRIUM [None]
